FAERS Safety Report 15962695 (Version 1)
Quarter: 2019Q1

REPORT INFORMATION
  Report Type: Spontaneous
  Country: ES (occurrence: ES)
  Receive Date: 20190214
  Receipt Date: 20190214
  Transmission Date: 20190417
  Serious: Yes (Life-Threatening, Hospitalization)
  Sender: FDA-Public Use
  Company Number: ES-BAYER-2019-026823

PATIENT
  Age: 49 Year
  Sex: Female

DRUGS (7)
  1. LYRICA [Concomitant]
     Active Substance: PREGABALIN
     Indication: RESTLESS LEGS SYNDROME
     Dosage: 75 MG, Q8HR
     Route: 048
     Dates: start: 20181023, end: 20190118
  2. REQUIP [Concomitant]
     Active Substance: ROPINIROLE HYDROCHLORIDE
     Indication: RESTLESS LEGS SYNDROME
     Dosage: 1 MG, BID
     Route: 048
     Dates: start: 20161222, end: 20190118
  3. ACFOL [Concomitant]
     Active Substance: FOLIC ACID
     Indication: HYPOVITAMINOSIS
     Dosage: 5 MG, QD
     Route: 048
     Dates: start: 20170804, end: 20190118
  4. HIDROFEROL [Concomitant]
     Active Substance: CALCIFEDIOL
     Indication: HYPOVITAMINOSIS
     Dosage: 1 DF, UNK
     Route: 048
     Dates: start: 20181210, end: 20190118
  5. ANTALGIN [INDOMETACIN] [Concomitant]
     Indication: SCIATICA
     Dosage: 550 MG, Q8HR
     Route: 048
     Dates: start: 20140405, end: 20190118
  6. ACTIRA [Suspect]
     Active Substance: MOXIFLOXACIN HYDROCHLORIDE
     Indication: BRONCHITIS
     Dosage: 400 MG, QD
     Route: 048
     Dates: start: 20190108, end: 20190114
  7. FOSTER NEXTHALER [Concomitant]
     Indication: ASTHMA
     Dosage: 1 DF, BID
     Route: 055
     Dates: start: 20160208

REACTIONS (1)
  - Acute hepatic failure [Recovering/Resolving]

NARRATIVE: CASE EVENT DATE: 20190114
